FAERS Safety Report 19220277 (Version 8)
Quarter: 2024Q1

REPORT INFORMATION
  Report Type: Spontaneous
  Country: IN (occurrence: IN)
  Receive Date: 20210505
  Receipt Date: 20240129
  Transmission Date: 20240410
  Serious: Yes (Other)
  Sender: FDA-Public Use
  Company Number: IN-PFIZER INC-2021260045

PATIENT
  Age: 52 Year
  Sex: Female

DRUGS (5)
  1. PALBOCICLIB [Suspect]
     Active Substance: PALBOCICLIB
     Indication: Breast cancer metastatic
     Dosage: 1 DAILY FOR 21 DAYS/30 DAYS IN A MONTH X 4 MONTHS
     Route: 048
     Dates: start: 20201228, end: 202203
  2. PALBOCICLIB [Suspect]
     Active Substance: PALBOCICLIB
     Dosage: 1 DAILY FOR 21 DAYS IN A MONTH
     Route: 048
  3. FEMARA [Concomitant]
     Active Substance: LETROZOLE
     Dosage: 1 DF, DAILY FOR 4 MONTHS
     Dates: start: 202101
  4. MINERALS\VITAMINS [Concomitant]
     Active Substance: MINERALS\VITAMINS
     Dosage: 1 DF, DAILY FOR 4 MONTHS
     Dates: start: 202101
  5. OSTEOPHOS [Concomitant]
     Dosage: 70 MG, WEEKLY

REACTIONS (8)
  - COVID-19 [Recovered/Resolved]
  - Cardiac operation [Unknown]
  - Asthenia [Unknown]
  - Pain in extremity [Unknown]
  - Haemoglobin decreased [Unknown]
  - White blood cell count decreased [Unknown]
  - Cough [Recovered/Resolved]
  - Nasopharyngitis [Recovered/Resolved]

NARRATIVE: CASE EVENT DATE: 20220301
